FAERS Safety Report 21186168 (Version 1)
Quarter: 2022Q3

REPORT INFORMATION
  Report Type: Report from Study
  Country: US (occurrence: US)
  Receive Date: 20220808
  Receipt Date: 20220808
  Transmission Date: 20221027
  Serious: Yes (Other)
  Sender: FDA-Public Use
  Company Number: US-BRISTOL-MYERS SQUIBB COMPANY-2022-082703

PATIENT
  Age: 82 Year
  Sex: Male
  Weight: 90.72 kg

DRUGS (1)
  1. POMALYST [Suspect]
     Active Substance: POMALIDOMIDE
     Indication: Plasma cell myeloma
     Dosage: FOR 21 DAYS 28 DAY CYCLE
     Route: 048
     Dates: start: 20211023

REACTIONS (4)
  - Limb injury [Unknown]
  - Infection [Unknown]
  - Balance disorder [Unknown]
  - COVID-19 [Unknown]
